FAERS Safety Report 6193805-0 (Version None)
Quarter: 2009Q2

REPORT INFORMATION
  Report Type: 
  Country: None (occurrence: None)
  Receive Date: 20090518
  Receipt Date: 20090506
  Transmission Date: 20091009
  Serious: Yes (Hospitalization)
  Sender: FDA-Public Use
  Company Number: US-GENENTECH-281189

PATIENT
  Sex: Female

DRUGS (1)
  1. RAPTIVA [Suspect]
     Indication: PSORIASIS
     Dosage: 0.6 MG, 1/WEEK
     Route: 058
     Dates: start: 20051201, end: 20090401

REACTIONS (1)
  - TRANSIENT ISCHAEMIC ATTACK [None]
